FAERS Safety Report 8408345-5 (Version None)
Quarter: 2012Q2

REPORT INFORMATION
  Report Type: 
  Country: None (occurrence: None)
  Receive Date: 20120604
  Receipt Date: 20120530
  Transmission Date: 20120825
  Serious: Yes (Death, Other)
  Sender: FDA-Public Use
  Company Number: AU-ABBOTT-12P-008-0940047-00

PATIENT
  Sex: Male

DRUGS (6)
  1. OMEPRAZOLE (PRISOLEC) [Concomitant]
     Indication: PRODUCT USED FOR UNKNOWN INDICATION
  2. HUMIRA [Suspect]
     Dosage: FLARED VERY BADLY AND CAME BACK ON IT
  3. PREDNISONE TAB [Concomitant]
     Indication: PRODUCT USED FOR UNKNOWN INDICATION
  4. ACTONEL [Concomitant]
     Indication: PRODUCT USED FOR UNKNOWN INDICATION
  5. HUMIRA [Suspect]
     Indication: RHEUMATOID ARTHRITIS
  6. CREON [Concomitant]
     Indication: PRODUCT USED FOR UNKNOWN INDICATION

REACTIONS (6)
  - RHEUMATOID ARTHRITIS [None]
  - WEIGHT DECREASED [None]
  - KLEBSIELLA SEPSIS [None]
  - ORGAN FAILURE [None]
  - SEPSIS [None]
  - BRONCHOPULMONARY ASPERGILLOSIS [None]
